FAERS Safety Report 5040769-9 (Version None)
Quarter: 2006Q2

REPORT INFORMATION
  Report Type: 
  Country: None (occurrence: None)
  Receive Date: 20060630
  Receipt Date: 20060630
  Transmission Date: 20061013
  Serious: No
  Sender: FDA-Public Use
  Company Number: None

PATIENT
  Sex: Male
  Weight: 82.1011 kg

DRUGS (6)
  1. CLINDAMYCIN [Suspect]
     Indication: CELLULITIS
     Dosage: 600MG  Q6H   IV
     Route: 042
     Dates: start: 20060405, end: 20060407
  2. CLINDAMYCIN [Suspect]
     Dosage: 300MG  Q6H   PO
     Route: 048
     Dates: start: 20060407, end: 20060414
  3. REGULAR INSULIN [Concomitant]
  4. LOSARTAN [Concomitant]
  5. LEVOTHYROXIN [Concomitant]
  6. LOVASTATIN [Concomitant]

REACTIONS (1)
  - DYSGEUSIA [None]
